FAERS Safety Report 4554826-4 (Version None)
Quarter: 2005Q1

REPORT INFORMATION
  Report Type: 
  Country: None (occurrence: None)
  Receive Date: 20041227
  Receipt Date: 20040927
  Transmission Date: 20050727
  Serious: Yes (Other)
  Sender: FDA-Public Use
  Company Number: 2004-0007552

PATIENT
  Age: 53 Year
  Sex: Male
  Weight: 79.3795 kg

DRUGS (7)
  1. VIREAD [Suspect]
     Indication: HIV INFECTION
     Dosage: 300 MG, 1 IN 1 D, ORAL
     Route: 048
     Dates: start: 20041222, end: 20040510
  2. LAMIVUDINE [Concomitant]
  3. ZIAGEN [Concomitant]
  4. SUSTIVA [Concomitant]
  5. NEURONTIN [Concomitant]
  6. SEPTRA DS [Concomitant]
  7. WELLBUTRIN [Concomitant]

REACTIONS (1)
  - FANCONI SYNDROME ACQUIRED [None]
